FAERS Safety Report 13744901 (Version 1)
Quarter: 2017Q3

REPORT INFORMATION
  Report Type: Spontaneous
  Country: US (occurrence: US)
  Receive Date: 20170712
  Receipt Date: 20170712
  Transmission Date: 20171127
  Serious: No
  Sender: FDA-Public Use
  Company Number: US-PFIZER INC-2017298469

PATIENT
  Age: 55 Year
  Sex: Female

DRUGS (2)
  1. XELJANZ XR [Suspect]
     Active Substance: TOFACITINIB CITRATE
     Dosage: UNK
  2. SULFASALAZINE. [Suspect]
     Active Substance: SULFASALAZINE
     Dosage: 500 MG, 2X/DAY

REACTIONS (11)
  - Joint swelling [Recovering/Resolving]
  - Fibromyalgia [Recovering/Resolving]
  - Arthralgia [Unknown]
  - Cough [Unknown]
  - Wheezing [Unknown]
  - Joint stiffness [Recovering/Resolving]
  - Peripheral swelling [Recovering/Resolving]
  - Dyspnoea [Unknown]
  - Pulmonary function test abnormal [Unknown]
  - Blood pressure increased [Unknown]
  - Pulmonary mass [Unknown]
